FAERS Safety Report 5889030-0 (Version None)
Quarter: 2008Q3

REPORT INFORMATION
  Report Type: 
  Country: None (occurrence: None)
  Receive Date: 20080919
  Receipt Date: 20070907
  Transmission Date: 20090109
  Serious: No
  Sender: FDA-Public Use
  Company Number: US-KINGPHARMUSA00001-K200701153

PATIENT

DRUGS (2)
  1. SONATA [Suspect]
     Indication: SLEEP DISORDER
     Dosage: UNK, SINGLE
     Dates: start: 20070906, end: 20070906
  2. LORAZEPAM [Concomitant]
     Indication: ANXIETY
     Dosage: .5 MG, UNK
     Route: 048
     Dates: start: 20050101

REACTIONS (5)
  - DRUG EFFECT DECREASED [None]
  - FEELING JITTERY [None]
  - MIDDLE INSOMNIA [None]
  - NIGHT SWEATS [None]
  - PALPITATIONS [None]
